FAERS Safety Report 4939497-7 (Version None)
Quarter: 2006Q1

REPORT INFORMATION
  Report Type: 
  Country: None (occurrence: None)
  Receive Date: 20060310
  Receipt Date: 20060306
  Transmission Date: 20060701
  Serious: Yes (Hospitalization)
  Sender: FDA-Public Use
  Company Number: PHBS2006ES03518

PATIENT
  Sex: Female

DRUGS (2)
  1. METFORMIN [Suspect]
     Route: 048
     Dates: end: 20050601
  2. DIOVAN [Suspect]
     Dosage: 160 MG, UNK
     Route: 048
     Dates: end: 20050601

REACTIONS (1)
  - GASTROENTERITIS [None]
